FAERS Safety Report 5490443-X (Version None)
Quarter: 2007Q4

REPORT INFORMATION
  Report Type: 
  Country: None (occurrence: None)
  Receive Date: 20071017
  Receipt Date: 20071017
  Transmission Date: 20080405
  Serious: Yes (Other)
  Sender: FDA-Public Use
  Company Number: None

PATIENT
  Age: 50 Year
  Sex: Female
  Weight: 65.7716 kg

DRUGS (1)
  1. BUDEPRION XL TABLET 300 MG 300 MG TEVA PHARMACEUTICALS USA [Suspect]
     Indication: BIPOLAR DISORDER
     Dosage: 1 TABLET DAILY PO
     Route: 048
     Dates: start: 20070501, end: 20070801

REACTIONS (2)
  - DRUG EFFECT DECREASED [None]
  - THERAPEUTIC RESPONSE UNEXPECTED WITH DRUG SUBSTITUTION [None]
